FAERS Safety Report 7919967 (Version 5)
Quarter: 2013Q4

REPORT INFORMATION
  Report Type: Spontaneous
  Country: US (occurrence: US)
  Receive Date: 20110429
  Receipt Date: 20131007
  Transmission Date: 20140711
  Serious: Yes (Other)
  Sender: FDA-Public Use
  Company Number: US-PFIZER INC-2011089729

PATIENT
  Age: 46 Year
  Sex: Female

DRUGS (1)
  1. CALAN SR [Suspect]
     Indication: HYPERTENSION
     Dosage: 360 MG, DAILY (240 MG IN THE MORNING; 120 MG IN THE EVENING)
     Dates: start: 1991

REACTIONS (3)
  - Myocardial infarction [Unknown]
  - Cardiac arrest [Unknown]
  - Constipation [Unknown]
